FAERS Safety Report 15928453 (Version 1)
Quarter: 2019Q1

REPORT INFORMATION
  Report Type: Spontaneous
  Country: DE (occurrence: DE)
  Receive Date: 20190206
  Receipt Date: 20190206
  Transmission Date: 20190417
  Serious: Yes (Other)
  Sender: FDA-Public Use
  Company Number: DE-SA-2019SA027919

PATIENT
  Age: 63 Year
  Sex: Male
  Weight: 84 kg

DRUGS (1)
  1. PRALUENT [Suspect]
     Active Substance: ALIROCUMAB
     Indication: HYPERCHOLESTEROLAEMIA
     Route: 058
     Dates: start: 20170815, end: 20171009

REACTIONS (3)
  - Myopathy [Recovered/Resolved]
  - Mobility decreased [Recovered/Resolved]
  - Immobile [Recovered/Resolved]

NARRATIVE: CASE EVENT DATE: 2017
